FAERS Safety Report 9008687 (Version 1)
Quarter: 2013Q1

REPORT INFORMATION
  Report Type: Spontaneous
  Country: US (occurrence: US)
  Receive Date: 20130111
  Receipt Date: 20130111
  Transmission Date: 20140127
  Serious: Yes (Other)
  Sender: FDA-Public Use
  Company Number: US-009507513-1007USA03889

PATIENT
  Age: 11 Year
  Sex: Female
  Weight: 49.9 kg

DRUGS (4)
  1. SINGULAIR [Suspect]
     Indication: ASTHMA
     Dosage: 5 MG, QD
     Route: 048
     Dates: start: 20090917, end: 20091004
  2. SINGULAIR [Suspect]
     Indication: SEASONAL ALLERGY
  3. CLARITIN [Concomitant]
     Dosage: UNK UNK, QD
     Dates: start: 20090917
  4. FLUTICASONE PROPIONATE [Concomitant]
     Dosage: 1 DF, QD
     Route: 055
     Dates: start: 20090917

REACTIONS (3)
  - Social avoidant behaviour [Unknown]
  - Flat affect [Unknown]
  - Depression [Unknown]
